FAERS Safety Report 14280268 (Version 1)
Quarter: 2017Q4

REPORT INFORMATION
  Report Type: Spontaneous
  Country: JP (occurrence: JP)
  Receive Date: 20171213
  Receipt Date: 20171213
  Transmission Date: 20180321
  Serious: Yes (Hospitalization)
  Sender: FDA-Public Use
  Company Number: JP-SHIRE-JP201722940

PATIENT

DRUGS (4)
  1. LIALDA [Suspect]
     Active Substance: MESALAMINE
     Dosage: 4800 MG, 1X/DAY:QD
     Route: 048
     Dates: start: 20170705, end: 20170718
  2. LIALDA [Suspect]
     Active Substance: MESALAMINE
     Dosage: 4800 MG, 1X/DAY:QD
     Route: 048
     Dates: start: 20170719
  3. MIYA-BM [Concomitant]
     Active Substance: CLOSTRIDIUM BUTYRICUM SPORES STRAIN M-55
     Indication: DIARRHOEA
  4. LIALDA [Suspect]
     Active Substance: MESALAMINE
     Indication: COLITIS ULCERATIVE
     Dosage: 2400 MG, 1X/DAY:QD
     Route: 048

REACTIONS (7)
  - Arthritis reactive [Recovered/Resolved]
  - Musculoskeletal stiffness [Unknown]
  - Acute sinusitis [Recovered/Resolved]
  - Headache [Recovered/Resolved]
  - Pyrexia [Recovered/Resolved]
  - Pleurisy [Recovered/Resolved]
  - Neck pain [Recovering/Resolving]

NARRATIVE: CASE EVENT DATE: 20170716
